FAERS Safety Report 4645289-9 (Version None)
Quarter: 2005Q2

REPORT INFORMATION
  Report Type: 
  Country: None (occurrence: None)
  Receive Date: 20050331
  Receipt Date: 20050201
  Transmission Date: 20051028
  Serious: No
  Sender: FDA-Public Use
  Company Number: 04P-163-0279908

PATIENT
  Age: 75 Year
  Sex: Female
  Weight: 51.7101 kg

DRUGS (4)
  1. HUMIRA [Suspect]
     Indication: RHEUMATOID ARTHRITIS
     Dosage: 40 MG, 1 IN 2 WK, SUBCUTANEOUS
     Route: 058
     Dates: start: 20040701, end: 20041201
  2. LORATADINE [Concomitant]
  3. CLONESTESOL [Concomitant]
  4. PREDNISONE [Concomitant]

REACTIONS (6)
  - COUGH [None]
  - CYSTITIS [None]
  - LARYNGITIS [None]
  - NASOPHARYNGITIS [None]
  - RHEUMATOID ARTHRITIS [None]
  - URINARY TRACT INFECTION [None]
